APPROVED DRUG PRODUCT: GEMFIBROZIL
Active Ingredient: GEMFIBROZIL
Strength: 600MG
Dosage Form/Route: TABLET;ORAL
Application: A078012 | Product #001 | TE Code: AB
Applicant: EPIC PHARMA LLC
Approved: Mar 26, 2007 | RLD: No | RS: No | Type: RX